FAERS Safety Report 13563845 (Version 2)
Quarter: 2017Q2

REPORT INFORMATION
  Report Type: Spontaneous
  Country: FR (occurrence: FR)
  Receive Date: 20170519
  Receipt Date: 20170522
  Transmission Date: 20170830
  Serious: Yes (Other)
  Sender: FDA-Public Use
  Company Number: FR-009507513-1705FRA007049

PATIENT
  Age: 29 Year
  Sex: Female
  Weight: 70 kg

DRUGS (1)
  1. NEXPLANON [Suspect]
     Active Substance: ETONOGESTREL
     Dosage: 1 IMPLANT, FOR THREE YEARS
     Route: 059
     Dates: start: 20120812

REACTIONS (21)
  - Device difficult to use [Not Recovered/Not Resolved]
  - Surgery [Unknown]
  - Infertility [Not Recovered/Not Resolved]
  - Incorrect drug administration duration [Unknown]
  - Incision site complication [Unknown]
  - Vaginal haemorrhage [Recovered/Resolved]
  - Ovarian cyst [Unknown]
  - Breast feeding [Unknown]
  - Localised infection [Unknown]
  - Migration of implanted drug [Not Recovered/Not Resolved]
  - Weight increased [Recovered/Resolved]
  - Postoperative wound infection [Unknown]
  - Scar [Unknown]
  - Muscular weakness [Unknown]
  - Dizziness [Unknown]
  - Menstruation normal [Unknown]
  - Inappropriate schedule of drug administration [Unknown]
  - Mobility decreased [Unknown]
  - Paraesthesia [Unknown]
  - Menstruation irregular [Unknown]
  - Complication associated with device [Recovered/Resolved]

NARRATIVE: CASE EVENT DATE: 20120812
